FAERS Safety Report 9825265 (Version 1)
Quarter: 2014Q1

REPORT INFORMATION
  Report Type: Spontaneous
  Country: US (occurrence: None)
  Receive Date: 20140115
  Receipt Date: 20140115
  Transmission Date: 20141002
  Serious: Yes (Other)
  Sender: FDA-Public Use
  Company Number: None

PATIENT
  Age: 72 Year
  Sex: Male
  Weight: 65.5 kg

DRUGS (2)
  1. RIVAROXABAN [Suspect]
     Indication: DEEP VEIN THROMBOSIS
     Route: 048
     Dates: start: 20130308, end: 20130405
  2. RIVAROXABAN [Suspect]
     Indication: PULMONARY EMBOLISM
     Route: 048
     Dates: start: 20130308, end: 20130405

REACTIONS (8)
  - Asthenia [None]
  - Dehydration [None]
  - Infection [None]
  - Sedation [None]
  - Myalgia [None]
  - Myalgia [None]
  - Somnolence [None]
  - Anaemia [None]
